FAERS Safety Report 19306088 (Version 4)
Quarter: 2021Q2

REPORT INFORMATION
  Report Type: Report from Study
  Country: CO (occurrence: CO)
  Receive Date: 20210525
  Receipt Date: 20210623
  Transmission Date: 20210717
  Serious: Yes (Other)
  Sender: FDA-Public Use
  Company Number: CO-TAKEDA-CO202010417

PATIENT
  Age: 41 Year
  Sex: Female
  Weight: 70 kg

DRUGS (39)
  1. ICATIBANT [Suspect]
     Active Substance: ICATIBANT ACETATE
     Dosage: 30MG/3ML
     Route: 058
     Dates: start: 20200831, end: 20200902
  2. CINRYZE [Suspect]
     Active Substance: HUMAN C1-ESTERASE INHIBITOR
     Indication: HEREDITARY ANGIOEDEMA
     Dosage: 500 INTERNATIONAL UNIT
     Route: 065
     Dates: start: 20180530
  3. CINRYZE [Suspect]
     Active Substance: HUMAN C1-ESTERASE INHIBITOR
     Dosage: 500 INTERNATIONAL UNIT
     Route: 050
     Dates: start: 20181018
  4. CINRYZE [Suspect]
     Active Substance: HUMAN C1-ESTERASE INHIBITOR
     Dosage: 2 DOSAGE FORM
     Route: 042
  5. ICATIBANT [Suspect]
     Active Substance: ICATIBANT ACETATE
     Dosage: 30MG/ 3 ML, UNKOWN
     Route: 058
     Dates: start: 20200508, end: 20200508
  6. ICATIBANT [Suspect]
     Active Substance: ICATIBANT ACETATE
     Dosage: 30MG/3 ML
     Route: 058
     Dates: start: 20200523, end: 20200525
  7. ICATIBANT [Suspect]
     Active Substance: ICATIBANT ACETATE
     Dosage: 30MG/3 ML
     Route: 058
     Dates: start: 20200523, end: 20200525
  8. ICATIBANT [Suspect]
     Active Substance: ICATIBANT ACETATE
     Dosage: 30MG/3ML
     Route: 058
     Dates: start: 20200707, end: 20200707
  9. TAKHZYRO [Suspect]
     Active Substance: LANADELUMAB-FLYO
     Indication: HYPERSENSITIVITY
     Dosage: 300 MILLIGRAM, Q2WEEKS
     Route: 058
  10. ICATIBANT [Suspect]
     Active Substance: ICATIBANT ACETATE
     Indication: HYPERSENSITIVITY
     Dosage: 30MG / 3 ML, AS REQ^D
     Route: 058
     Dates: start: 20200331
  11. ICATIBANT [Suspect]
     Active Substance: ICATIBANT ACETATE
     Indication: HYPERSENSITIVITY
     Dosage: 30MG / 3 ML, AS REQ^D
     Route: 058
     Dates: start: 20200331
  12. ICATIBANT [Suspect]
     Active Substance: ICATIBANT ACETATE
     Dosage: 30MG / 3 ML, AS REQ^D
     Route: 058
     Dates: start: 20200414, end: 20200414
  13. ICATIBANT [Suspect]
     Active Substance: ICATIBANT ACETATE
     Dosage: 30MG/3 ML
     Route: 058
     Dates: start: 20200513, end: 20200513
  14. ICATIBANT [Suspect]
     Active Substance: ICATIBANT ACETATE
     Dosage: 30MG/3ML
     Route: 058
     Dates: start: 20200619, end: 20200620
  15. ICATIBANT [Suspect]
     Active Substance: ICATIBANT ACETATE
     Dosage: 30MG/3ML
     Route: 058
     Dates: start: 20200619, end: 20200620
  16. ICATIBANT [Suspect]
     Active Substance: ICATIBANT ACETATE
     Dosage: 30MG/3ML, AS REQ^D
     Route: 058
     Dates: start: 20200624, end: 20200625
  17. ICATIBANT [Suspect]
     Active Substance: ICATIBANT ACETATE
     Dosage: 30MG/3ML, AS REQ^D
     Route: 058
     Dates: start: 20200624, end: 20200625
  18. ICATIBANT [Suspect]
     Active Substance: ICATIBANT ACETATE
     Dosage: 300 MILLIGRAM (30MG/2ML)
     Route: 058
  19. ICATIBANT [Suspect]
     Active Substance: ICATIBANT ACETATE
     Dosage: 30 MILLIGRAM/3 ML
     Route: 058
     Dates: start: 20170601
  20. ICATIBANT [Suspect]
     Active Substance: ICATIBANT ACETATE
     Dosage: 30 MILLIGRAM/3 ML
     Route: 058
     Dates: start: 20170601
  21. ICATIBANT [Suspect]
     Active Substance: ICATIBANT ACETATE
     Dosage: 30MG / 3 ML, AS REQ^D
     Route: 058
     Dates: start: 20200414, end: 20200414
  22. CINRYZE [Suspect]
     Active Substance: HUMAN C1-ESTERASE INHIBITOR
     Dosage: 500 INTERNATIONAL UNIT
     Route: 050
     Dates: start: 20181018
  23. ICATIBANT [Suspect]
     Active Substance: ICATIBANT ACETATE
     Indication: HEREDITARY ANGIOEDEMA
     Dosage: 30MG/3ML, PRN
     Route: 058
     Dates: start: 20170601
  24. ICATIBANT [Suspect]
     Active Substance: ICATIBANT ACETATE
     Dosage: 30MG / 3 ML, AS REQ^D
     Route: 058
     Dates: start: 20200505, end: 20200505
  25. ICATIBANT [Suspect]
     Active Substance: ICATIBANT ACETATE
     Dosage: 30MG/ 3 ML, UNKOWN
     Route: 058
     Dates: start: 20200508, end: 20200508
  26. CINRYZE [Suspect]
     Active Substance: HUMAN C1-ESTERASE INHIBITOR
     Dosage: 500 INTERNATIONAL UNIT
     Route: 050
     Dates: start: 20181018
  27. ICATIBANT [Suspect]
     Active Substance: ICATIBANT ACETATE
     Dosage: UNK, PRN
     Route: 058
     Dates: start: 20170601
  28. ICATIBANT [Suspect]
     Active Substance: ICATIBANT ACETATE
     Dosage: 300 MILLIGRAM (30MG/2ML)
     Route: 058
  29. CINRYZE [Suspect]
     Active Substance: HUMAN C1-ESTERASE INHIBITOR
     Indication: HEREDITARY ANGIOEDEMA
     Dosage: 500 INTERNATIONAL UNIT
     Route: 065
     Dates: start: 20180530
  30. CINRYZE [Suspect]
     Active Substance: HUMAN C1-ESTERASE INHIBITOR
     Dosage: 2 DOSAGE FORM
     Route: 042
  31. CINRYZE [Suspect]
     Active Substance: HUMAN C1-ESTERASE INHIBITOR
     Dosage: 2 DOSAGE FORM
     Route: 042
  32. ICATIBANT [Suspect]
     Active Substance: ICATIBANT ACETATE
     Dosage: 30MG / 3 ML, AS REQ^D
     Route: 058
     Dates: start: 20200505, end: 20200505
  33. TAKHZYRO [Suspect]
     Active Substance: LANADELUMAB-FLYO
     Indication: HEREDITARY ANGIOEDEMA
     Dosage: 300 MG/2ML, Q2WEEKS
     Route: 058
     Dates: start: 20210419
  34. ICATIBANT [Suspect]
     Active Substance: ICATIBANT ACETATE
     Indication: HEREDITARY ANGIOEDEMA
     Dosage: 30MG/3ML, PRN
     Route: 058
     Dates: start: 20170601
  35. ICATIBANT [Suspect]
     Active Substance: ICATIBANT ACETATE
     Dosage: 30MG/3 ML
     Route: 058
     Dates: start: 20200513, end: 20200513
  36. ICATIBANT [Suspect]
     Active Substance: ICATIBANT ACETATE
     Dosage: 30MG/3ML
     Route: 058
     Dates: start: 20200707, end: 20200707
  37. ICATIBANT [Suspect]
     Active Substance: ICATIBANT ACETATE
     Dosage: 30MG/3ML
     Route: 058
     Dates: start: 20200831, end: 20200902
  38. ICATIBANT [Suspect]
     Active Substance: ICATIBANT ACETATE
     Dosage: UNK, PRN
     Route: 058
     Dates: start: 20170601
  39. CINRYZE [Suspect]
     Active Substance: HUMAN C1-ESTERASE INHIBITOR
     Indication: HEREDITARY ANGIOEDEMA
     Dosage: 500 INTERNATIONAL UNIT
     Route: 065
     Dates: start: 20180530

REACTIONS (11)
  - Hereditary angioedema [Recovered/Resolved]
  - Body temperature increased [Recovered/Resolved]
  - Hyperaesthesia teeth [Recovered/Resolved]
  - Oropharyngeal pain [Not Recovered/Not Resolved]
  - Chills [Recovered/Resolved]
  - Mastication disorder [Recovered/Resolved]
  - Pain [Recovered/Resolved]
  - Product availability issue [Unknown]
  - Product dose omission issue [Unknown]
  - COVID-19 [Recovering/Resolving]
  - Drug hypersensitivity [Unknown]

NARRATIVE: CASE EVENT DATE: 20200313
